FAERS Safety Report 10616914 (Version 1)
Quarter: 2014Q4

REPORT INFORMATION
  Report Type: Spontaneous
  Country: US (occurrence: None)
  Receive Date: 20141126
  Receipt Date: 20141126
  Transmission Date: 20150529
  Serious: Yes (Hospitalization)
  Sender: FDA-Public Use
  Company Number: 2014CT000193

PATIENT
  Age: 32 Year
  Sex: Male
  Weight: 226.8 kg

DRUGS (2)
  1. LASIX [Concomitant]
     Active Substance: FUROSEMIDE
  2. KORLYM [Suspect]
     Active Substance: MIFEPRISTONE
     Indication: CUSHING^S SYNDROME
     Route: 048
     Dates: start: 20140919

REACTIONS (7)
  - Pericardial effusion [None]
  - Disease complication [None]
  - Dyspnoea [None]
  - Pleural effusion [None]
  - Inflammation [None]
  - Cushing^s syndrome [None]
  - Genital swelling [None]

NARRATIVE: CASE EVENT DATE: 20141112
